FAERS Safety Report 9328756 (Version 1)
Quarter: 2013Q2

REPORT INFORMATION
  Report Type: Spontaneous
  Country: US (occurrence: US)
  Receive Date: 20130604
  Receipt Date: 20130604
  Transmission Date: 20140414
  Serious: No
  Sender: FDA-Public Use
  Company Number: US-SANOFI-AVENTIS-2013SA012638

PATIENT
  Age: 79 Year
  Sex: Female
  Weight: 97 kg

DRUGS (5)
  1. SOLOSTAR [Suspect]
     Indication: TYPE 2 DIABETES MELLITUS
     Dosage: TREATMENT START DATE: 4-5 YEARS AGO
  2. SOLOSTAR [Suspect]
     Indication: TYPE 2 DIABETES MELLITUS
     Dosage: TREATMENT START DATE: 4-5 YEARS AGO
  3. LANTUS SOLOSTAR [Suspect]
     Indication: TYPE 2 DIABETES MELLITUS
     Dosage: TREATMENT START DATE: 4-5 YEARS AGO DOSE:25 UNIT(S)
  4. LANTUS SOLOSTAR [Suspect]
     Indication: TYPE 2 DIABETES MELLITUS
     Dosage: TREATMENT START DATE: 4-5 YEARS AGO DOSE:25 UNIT(S)
  5. NOVOLOG [Suspect]
     Indication: PRODUCT USED FOR UNKNOWN INDICATION
     Dosage: DOSE: 12 UNITS BREAKFAST AND SUPPER AND 8 UNITS AT LUNCH
     Route: 065

REACTIONS (4)
  - Anxiety [Unknown]
  - Contusion [Unknown]
  - Injury associated with device [Unknown]
  - Blood glucose increased [Unknown]
